FAERS Safety Report 26038422 (Version 2)
Quarter: 2025Q4

REPORT INFORMATION
  Report Type: Spontaneous
  Country: EU (occurrence: None)
  Receive Date: 20251113
  Receipt Date: 20251124
  Transmission Date: 20260118
  Serious: Yes (Other)
  Sender: ORGANON
  Company Number: None

PATIENT
  Age: 11 Year
  Sex: Female
  Weight: 70 kg

DRUGS (2)
  1. BETAMETHASONE DIPROPIONATE [Suspect]
     Active Substance: BETAMETHASONE DIPROPIONATE
     Indication: Eczema
     Dosage: OPEN SINCE AROUND 5 YEARS (1MG/G)
  2. HYDROCORTISONE ACETATE [Suspect]
     Active Substance: HYDROCORTISONE ACETATE
     Indication: Eczema
     Dosage: MULTIPLE TUBES SPREAD OVER 25 YEARS ON AND OFF (10MG/G)

REACTIONS (10)
  - Topical steroid withdrawal reaction [Not Recovered/Not Resolved]
  - Erythema [Not Recovered/Not Resolved]
  - Skin burning sensation [Not Recovered/Not Resolved]
  - Pruritus [Not Recovered/Not Resolved]
  - Skin exfoliation [Not Recovered/Not Resolved]
  - Chills [Not Recovered/Not Resolved]
  - Skin weeping [Not Recovered/Not Resolved]
  - Alopecia [Not Recovered/Not Resolved]
  - Skin infection [Not Recovered/Not Resolved]
  - Product use in unapproved indication [Unknown]

NARRATIVE: CASE EVENT DATE: 20180101
